FAERS Safety Report 6993578-5 (Version None)
Quarter: 2010Q3

REPORT INFORMATION
  Report Type: 
  Country: None (occurrence: None)
  Receive Date: 20100917
  Receipt Date: 20100906
  Transmission Date: 20110219
  Serious: Yes (Hospitalization)
  Sender: FDA-Public Use
  Company Number: PHHY2010PL59322

PATIENT
  Sex: Female
  Weight: 70 kg

DRUGS (1)
  1. ZOLEDRONATE T29581++BM [Suspect]
     Indication: METASTASES TO BONE
     Dosage: 4 MG
     Route: 042
     Dates: start: 20090420, end: 20100517

REACTIONS (11)
  - CYST [None]
  - DENTAL OPERATION [None]
  - IMPAIRED HEALING [None]
  - MASTICATION DISORDER [None]
  - OPEN WOUND [None]
  - OSTEOLYSIS [None]
  - PAIN [None]
  - PERIODONTITIS [None]
  - PURULENT DISCHARGE [None]
  - TOOTH EXTRACTION [None]
  - TOOTHACHE [None]
